FAERS Safety Report 7749654-2 (Version None)
Quarter: 2011Q3

REPORT INFORMATION
  Report Type: 
  Country: None (occurrence: None)
  Receive Date: 20110914
  Receipt Date: 20110830
  Transmission Date: 20111222
  Serious: No
  Sender: FDA-Public Use
  Company Number: US-BAYER-2011-081757

PATIENT
  Age: 75 Year
  Sex: Female
  Weight: 68 kg

DRUGS (8)
  1. ALEVE (CAPLET) [Suspect]
     Dosage: 8 DF, PRN
     Route: 048
     Dates: start: 20100801
  2. ANTIDEPRESSANTS [Concomitant]
  3. BLADDER CONTROL MEDICINE [Concomitant]
  4. LOVAZA [Concomitant]
     Dosage: UNK
  5. ONE A DAY ENERGY [Concomitant]
  6. LORTAB [Concomitant]
  7. LIPITOR [Concomitant]
  8. ANTIHYPERTENSIVES [Concomitant]

REACTIONS (1)
  - NO ADVERSE EVENT [None]
